FAERS Safety Report 4321018-3 (Version None)
Quarter: 2004Q1

REPORT INFORMATION
  Report Type: 
  Country: None (occurrence: None)
  Receive Date: 20040315
  Receipt Date: 20031030
  Transmission Date: 20041129
  Serious: Yes (Hospitalization)
  Sender: FDA-Public Use
  Company Number: PHEH2003US08905

PATIENT
  Age: 17 Year
  Sex: Female

DRUGS (3)
  1. TRILEPTAL [Suspect]
     Indication: CONVULSION
     Dosage: 300 MG QAM/600 MG QPM; 600 MG/BID
     Dates: end: 20030929
  2. TRILEPTAL [Suspect]
     Indication: CONVULSION
     Dosage: 300 MG QAM/600 MG QPM; 600 MG/BID
     Dates: start: 20030929, end: 20031019
  3. ADDERALL (AMFEETAMINE ASPARTATE, AMFETAMINE SULFATE, DEXAMFETAMINE SAC [Concomitant]

REACTIONS (4)
  - CONDITION AGGRAVATED [None]
  - CONVULSION [None]
  - DEPRESSED LEVEL OF CONSCIOUSNESS [None]
  - MEMORY IMPAIRMENT [None]
